FAERS Safety Report 4694390-2 (Version None)
Quarter: 2005Q2

REPORT INFORMATION
  Report Type: 
  Country: None (occurrence: None)
  Receive Date: 20050614
  Receipt Date: 20050310
  Transmission Date: 20051028
  Serious: No
  Sender: FDA-Public Use
  Company Number: USA050392885

PATIENT
  Age: 78 Year
  Sex: Male

DRUGS (5)
  1. CIALIS [Suspect]
     Indication: ERECTILE DYSFUNCTION
     Dosage: 10 MG DAY
  2. ZOCOR (SIMVASTATIN RATIOPHARM) [Concomitant]
  3. PRINIVIL [Concomitant]
  4. FLOMAX MR (TAMSULOSIN HYDROCHLORIDE) [Concomitant]
  5. ZOLOFT [Concomitant]

REACTIONS (2)
  - DRUG INEFFECTIVE [None]
  - PAIN IN EXTREMITY [None]
